FAERS Safety Report 5934681-8 (Version None)
Quarter: 2008Q4

REPORT INFORMATION
  Report Type: 
  Country: None (occurrence: None)
  Receive Date: 20081029
  Receipt Date: 20081021
  Transmission Date: 20090506
  Serious: Yes (Disabling, Other)
  Sender: FDA-Public Use
  Company Number: US-BAYER-200824868NA

PATIENT
  Sex: Male

DRUGS (18)
  1. MAGNEVIST [Suspect]
     Indication: ANGIOGRAM
     Dates: start: 20040830, end: 20040830
  2. MAGNEVIST [Suspect]
     Dates: start: 20050630, end: 20050630
  3. MAGNEVIST [Suspect]
     Dates: start: 20061026, end: 20061026
  4. MAGNEVIST [Suspect]
     Dates: start: 20070316, end: 20070316
  5. MAGNEVIST [Suspect]
     Dates: start: 20061107, end: 20061107
  6. OPTIMARK [Suspect]
     Indication: NUCLEAR MAGNETIC RESONANCE IMAGING
     Dates: start: 20070124, end: 20070124
  7. ALOPURINOL [Concomitant]
     Dosage: TOTAL DAILY DOSE: 50 MG
  8. ASPIRIN [Concomitant]
  9. FUROSEMIDE [Concomitant]
  10. CLONIDINE [Concomitant]
  11. COREG [Concomitant]
  12. HYDRALAZINE HCL [Concomitant]
  13. ZOLOFT [Concomitant]
  14. RENAGEL [Concomitant]
  15. LIPITOR [Concomitant]
  16. VITAMIN B-12 [Concomitant]
  17. INSULIN [Concomitant]
  18. INSULIN [Concomitant]

REACTIONS (5)
  - ANXIETY [None]
  - EMOTIONAL DISTRESS [None]
  - INJURY [None]
  - NEPHROGENIC SYSTEMIC FIBROSIS [None]
  - PAIN [None]
